FAERS Safety Report 16703131 (Version 1)
Quarter: 2019Q3

REPORT INFORMATION
  Report Type: Spontaneous
  Country: HR (occurrence: HR)
  Receive Date: 20190814
  Receipt Date: 20190814
  Transmission Date: 20191004
  Serious: Yes (Other)
  Sender: FDA-Public Use
  Company Number: HR-PFIZER INC-2019348404

PATIENT
  Age: 54 Year
  Sex: Female

DRUGS (5)
  1. ZARACET [Suspect]
     Active Substance: ACETAMINOPHEN\TRAMADOL HYDROCHLORIDE
     Dosage: 50 DF, UNK
     Route: 048
     Dates: start: 20190608, end: 20190608
  2. LUNATA [Suspect]
     Active Substance: ZOLPIDEM TARTRATE
     Dosage: 200 MG, UNK
     Route: 048
     Dates: start: 20190608, end: 20190608
  3. MISAR (ALPRAZOLAM) [Suspect]
     Active Substance: ALPRAZOLAM
     Dosage: 36 MG, UNK
     Route: 048
     Dates: start: 20190608, end: 20190608
  4. XANAX [Suspect]
     Active Substance: ALPRAZOLAM
     Dosage: 20 DF, UNK
     Route: 048
     Dates: start: 20190608, end: 20190608
  5. PRAZINE (PROMAZINE HYDROCHLORIDE) [Suspect]
     Active Substance: PROMAZINE HYDROCHLORIDE
     Dosage: 1250 MG, UNK
     Route: 048
     Dates: start: 20190608, end: 20190608

REACTIONS (5)
  - Suicide attempt [Unknown]
  - Intentional overdose [Unknown]
  - Somnolence [Unknown]
  - Hypotension [Unknown]
  - Oxygen saturation decreased [Unknown]

NARRATIVE: CASE EVENT DATE: 20190608
